FAERS Safety Report 14881733 (Version 1)
Quarter: 2018Q2

REPORT INFORMATION
  Report Type: Spontaneous
  Country: CA (occurrence: CA)
  Receive Date: 20180511
  Receipt Date: 20180511
  Transmission Date: 20180711
  Serious: Yes (Hospitalization, Other)
  Sender: FDA-Public Use
  Company Number: CA-SA-2018SA126709

PATIENT
  Sex: Female

DRUGS (7)
  1. ARAVA [Suspect]
     Active Substance: LEFLUNOMIDE
     Route: 048
  2. REMICADE [Suspect]
     Active Substance: INFLIXIMAB
     Route: 042
  3. HYDROXYCHLOROQUINE [Suspect]
     Active Substance: HYDROXYCHLOROQUINE
     Route: 048
  4. CELEBREX [Suspect]
     Active Substance: CELECOXIB
     Route: 048
  5. ACTEMRA [Suspect]
     Active Substance: TOCILIZUMAB
     Route: 065
  6. METHOTREXATE. [Suspect]
     Active Substance: METHOTREXATE
     Indication: RHEUMATOID ARTHRITIS
     Route: 058
  7. SULFASALAZINE. [Suspect]
     Active Substance: SULFASALAZINE
     Indication: RHEUMATOID ARTHRITIS
     Route: 065

REACTIONS (23)
  - Mouth ulceration [Unknown]
  - Anaemia of chronic disease [Unknown]
  - Abdominal pain upper [Unknown]
  - Microcytic anaemia [Unknown]
  - Neutropenia [Unknown]
  - Haemodilution [Unknown]
  - Renal cyst [Unknown]
  - Headache [Unknown]
  - Joint swelling [Unknown]
  - C-reactive protein increased [Unknown]
  - Pulmonary mass [Unknown]
  - Escherichia urinary tract infection [Unknown]
  - Fungal infection [Unknown]
  - Lymphadenopathy [Unknown]
  - Arthralgia [Unknown]
  - Drug ineffective [Unknown]
  - Hepatic haematoma [Unknown]
  - Pulmonary fibrosis [Unknown]
  - Hepatic cyst [Unknown]
  - Interferon gamma release assay positive [Unknown]
  - Musculoskeletal stiffness [Unknown]
  - Pyrexia [Unknown]
  - Thalassaemia [Unknown]
